FAERS Safety Report 6379970-0 (Version None)
Quarter: 2009Q3

REPORT INFORMATION
  Report Type: 
  Country: None (occurrence: None)
  Receive Date: 20090923
  Receipt Date: 20090911
  Transmission Date: 20100115
  Serious: Yes (Other)
  Sender: FDA-Public Use
  Company Number: 2009AP003739

PATIENT
  Age: 58 Year
  Sex: Female

DRUGS (4)
  1. MYCOPHENOLATE MOFETIL [Suspect]
  2. TACROLIMUS [Suspect]
  3. PREDNISOLONE [Suspect]
  4. ANTI-THYMOCYTE GLOBULIN NOS [Concomitant]

REACTIONS (14)
  - DIPLOPIA [None]
  - DISORIENTATION [None]
  - FAECAL INCONTINENCE [None]
  - HYPERGAMMAGLOBULINAEMIA [None]
  - HYPERPROTEINAEMIA [None]
  - MOOD SWINGS [None]
  - NAUSEA [None]
  - NYSTAGMUS [None]
  - PARAESTHESIA [None]
  - PLEOCYTOSIS [None]
  - PROGRESSIVE MULTIFOCAL LEUKOENCEPHALOPATHY [None]
  - SOMNOLENCE [None]
  - URINARY INCONTINENCE [None]
  - VERTIGO [None]
